FAERS Safety Report 25731153 (Version 1)
Quarter: 2025Q3

REPORT INFORMATION
  Report Type: Report from Study
  Country: IN (occurrence: IN)
  Receive Date: 20250827
  Receipt Date: 20250827
  Transmission Date: 20251020
  Serious: Yes (Death)
  Sender: DAIICHI
  Company Number: IN-AstraZeneca-CH-00936742A

PATIENT
  Sex: Female
  Weight: 45 kg

DRUGS (1)
  1. ENHERTU [Suspect]
     Active Substance: FAM-TRASTUZUMAB DERUXTECAN-NXKI
     Indication: HER2 positive breast cancer
     Dosage: 200 MG, ONCE EVERY 3 WK
     Route: 065

REACTIONS (3)
  - Dyspnoea [Fatal]
  - Cardiac failure [Fatal]
  - Cerebral disorder [Fatal]
